FAERS Safety Report 8260410-1 (Version None)
Quarter: 2012Q2

REPORT INFORMATION
  Report Type: 
  Country: None (occurrence: None)
  Receive Date: 20120404
  Receipt Date: 20120328
  Transmission Date: 20120825
  Serious: Yes (Hospitalization)
  Sender: FDA-Public Use
  Company Number: PHHY2012GB026778

PATIENT
  Age: 71 Year
  Sex: Male

DRUGS (3)
  1. ASPIRIN [Concomitant]
     Dosage: 75 MG, UNK
  2. CYPROTERONE [Interacting]
     Dosage: 300 MG, UNK
     Dates: start: 20110601
  3. SIMVASTATIN [Suspect]
     Dosage: 40 MG, UNK

REACTIONS (11)
  - MALAISE [None]
  - ALANINE AMINOTRANSFERASE INCREASED [None]
  - RHABDOMYOLYSIS [None]
  - MUSCULAR WEAKNESS [None]
  - GAMMA-GLUTAMYLTRANSFERASE INCREASED [None]
  - RENAL IMPAIRMENT [None]
  - BLOOD CREATINE PHOSPHOKINASE INCREASED [None]
  - BLOOD URINE PRESENT [None]
  - LIVER FUNCTION TEST ABNORMAL [None]
  - DRUG INTERACTION [None]
  - BLOOD CREATININE INCREASED [None]
